FAERS Safety Report 8163038-7 (Version None)
Quarter: 2012Q1

REPORT INFORMATION
  Report Type: 
  Country: None (occurrence: None)
  Receive Date: 20120224
  Receipt Date: 20120217
  Transmission Date: 20120608
  Serious: Yes (Other)
  Sender: FDA-Public Use
  Company Number: AU-B.I. PHARMACEUTICALS,INC./RIDGEFIELD-2012-AU-00291AU

PATIENT
  Sex: Male

DRUGS (5)
  1. CRESTOR [Concomitant]
  2. DIAMICRON [Concomitant]
  3. AMIODARONE HCL [Concomitant]
  4. PRADAXA [Suspect]
  5. METFORMIN HCL [Concomitant]

REACTIONS (3)
  - GASTROINTESTINAL HAEMORRHAGE [None]
  - CARDIAC FAILURE [None]
  - ANAEMIA [None]
